FAERS Safety Report 9319259 (Version 1)
Quarter: 2013Q2

REPORT INFORMATION
  Report Type: Report from Study
  Country: US (occurrence: US)
  Receive Date: 20130530
  Receipt Date: 20130530
  Transmission Date: 20140414
  Serious: Yes (Hospitalization, Other)
  Sender: FDA-Public Use
  Company Number: US-VERTEX PHARMACEUTICALS INC.-2013-005004

PATIENT
  Sex: Male

DRUGS (8)
  1. TELAPREVIR [Suspect]
     Indication: HEPATITIS C
     Dosage: 1125 MG, BID
     Route: 048
     Dates: start: 20111105, end: 20120128
  2. PEGASYS [Suspect]
     Indication: HEPATITIS C
     Dosage: 180 ?G, QW
     Route: 058
     Dates: start: 20111105, end: 20120426
  3. RIBAPAK [Suspect]
     Indication: HEPATITIS C
     Dosage: 1000 MG, QD
     Route: 048
     Dates: start: 20111105, end: 20120426
  4. RIBAPAK [Suspect]
     Dosage: 600 MG, UNK
  5. LEVOTHYROXINE [Concomitant]
     Indication: HYPOTHYROIDISM
     Dosage: UNK, QD
  6. ACTOS [Concomitant]
     Indication: DIABETES MELLITUS
     Dosage: UNK, QD
  7. AMBIEN [Concomitant]
     Indication: INSOMNIA
     Dosage: 1 AT BED
  8. COENZYME Q10 [Concomitant]
     Dosage: UNK, QD

REACTIONS (1)
  - Anaemia [Recovered/Resolved]
